APPROVED DRUG PRODUCT: PHYTONADIONE
Active Ingredient: PHYTONADIONE
Strength: 5MG
Dosage Form/Route: TABLET;ORAL
Application: A209373 | Product #001 | TE Code: AB
Applicant: AMNEAL PHARMACEUTICALS CO GMBH
Approved: May 11, 2018 | RLD: No | RS: No | Type: RX